FAERS Safety Report 17026821 (Version 1)
Quarter: 2019Q4

REPORT INFORMATION
  Report Type: Spontaneous
  Country: GB (occurrence: GB)
  Receive Date: 20191113
  Receipt Date: 20191113
  Transmission Date: 20200122
  Serious: Yes (Other)
  Sender: FDA-Public Use
  Company Number: GB-PFIZER INC-2019483801

PATIENT
  Age: 29 Year
  Sex: Female
  Weight: 46.6 kg

DRUGS (7)
  1. CABERGOLINE. [Suspect]
     Active Substance: CABERGOLINE
     Indication: GALACTORRHOEA
     Dosage: 0.5 MG, WEEKLY
     Route: 048
     Dates: start: 20170831, end: 20170906
  2. FERROUS FUMARATE [Concomitant]
     Active Substance: FERROUS FUMARATE
     Dosage: UNK
  3. TOLTERODINE [Concomitant]
     Active Substance: TOLTERODINE
     Dosage: UNK
  4. IMIPRAMINE HYDROCHLORIDE. [Concomitant]
     Active Substance: IMIPRAMINE HYDROCHLORIDE
     Dosage: UNK
  5. CINNARIZINE [Concomitant]
     Active Substance: CINNARIZINE
     Dosage: UNK
  6. CEFALEXIN [Concomitant]
     Active Substance: CEPHALEXIN
     Dosage: UNK
  7. DESMOTABS [Concomitant]
     Active Substance: DESMOPRESSIN
     Dosage: UNK

REACTIONS (1)
  - Lip swelling [Recovered/Resolved]

NARRATIVE: CASE EVENT DATE: 20170831
